FAERS Safety Report 8190181 (Version 3)
Quarter: 2014Q1

REPORT INFORMATION
  Report Type: Spontaneous
  Country: US (occurrence: US)
  Receive Date: 20111019
  Receipt Date: 20140322
  Transmission Date: 20141002
  Serious: Yes (Other)
  Sender: FDA-Public Use
  Company Number: US-ROCHE-783694

PATIENT
  Age: 15 Year
  Sex: Male
  Weight: 88.53 kg

DRUGS (1)
  1. ACCUTANE [Suspect]
     Indication: ACNE
     Dosage: DOSE: 80 MG DAILY
     Route: 048
     Dates: start: 199508, end: 199601

REACTIONS (9)
  - Proctitis ulcerative [Unknown]
  - Inflammatory bowel disease [Unknown]
  - Stress [Unknown]
  - Irritable bowel syndrome [Unknown]
  - Dry skin [Unknown]
  - Chapped lips [Unknown]
  - Mood swings [Unknown]
  - Epistaxis [Unknown]
  - Xerosis [Unknown]
